FAERS Safety Report 10978462 (Version 2)
Quarter: 2015Q2

REPORT INFORMATION
  Report Type: Spontaneous
  Country: JP (occurrence: JP)
  Receive Date: 20150402
  Receipt Date: 20150416
  Transmission Date: 20150821
  Serious: Yes (Hospitalization)
  Sender: FDA-Public Use
  Company Number: JP-AMGEN-JPNSP2015030869

PATIENT
  Age: 86 Year
  Sex: Female
  Weight: 37 kg

DRUGS (16)
  1. NICARDIPINE HYDROCHLORIDE. [Concomitant]
     Active Substance: NICARDIPINE HYDROCHLORIDE
     Dosage: UNK
     Route: 065
  2. PRALIA [Suspect]
     Active Substance: DENOSUMAB
     Indication: OSTEOPOROSIS
     Dosage: 60 MG, Q6MO
     Route: 058
     Dates: start: 20150310
  3. FRANDOL [Concomitant]
     Active Substance: ISOSORBIDE DINITRATE
     Dosage: UNK
     Route: 065
  4. LANSOPRAZOLE. [Concomitant]
     Active Substance: LANSOPRAZOLE
     Dosage: UNK
     Route: 065
  5. SENNA [Concomitant]
     Active Substance: SENNA LEAF\SENNOSIDES\SENNOSIDES A AND B
     Dosage: UNK
     Route: 065
  6. DENOTAS [Suspect]
     Active Substance: CALCIUM CARBONATE\CHOLECALCIFEROL\MAGNESIUM CARBONATE
     Indication: PROPHYLAXIS
     Dosage: 1 DF, QD
     Route: 048
     Dates: start: 20150310, end: 20150312
  7. DENOTAS [Suspect]
     Active Substance: CALCIUM CARBONATE\CHOLECALCIFEROL\MAGNESIUM CARBONATE
     Indication: HYPOCALCAEMIA
  8. HAEMOLEX [Concomitant]
     Dosage: UNK
     Route: 065
  9. BIOFERMIN                          /01617201/ [Concomitant]
     Active Substance: BACILLUS SUBTILIS\LACTOBACILLUS ACIDOPHILUS\STREPTOCOCCUS FAECAIS
     Dosage: UNK
     Route: 065
  10. MAGMITT [Concomitant]
     Active Substance: MAGNESIUM OXIDE
     Dosage: UNK
     Route: 065
  11. CELECOX [Suspect]
     Active Substance: CELECOXIB
     Indication: PAIN MANAGEMENT
     Dosage: 100 MG, BID
     Route: 048
     Dates: start: 20150226, end: 20150310
  12. REBAMIPIDE [Concomitant]
     Active Substance: REBAMIPIDE
     Dosage: UNK
     Route: 065
  13. ALUSA                              /00487801/ [Concomitant]
     Dosage: UNK
     Route: 065
  14. GANATON [Concomitant]
     Active Substance: ITOPRIDE
     Dosage: UNK
     Route: 065
  15. NEUROTROPIN                        /06251301/ [Concomitant]
     Dosage: 3.6IU/DAY
     Route: 041
     Dates: start: 20150314
  16. SOLULACT S [Concomitant]
     Dosage: 250MG/DAY
     Route: 041
     Dates: start: 20150314

REACTIONS (2)
  - Rash generalised [Recovering/Resolving]
  - Compression fracture [Unknown]

NARRATIVE: CASE EVENT DATE: 20150311
